FAERS Safety Report 13968757 (Version 1)
Quarter: 2017Q3

REPORT INFORMATION
  Report Type: Spontaneous
  Country: US (occurrence: US)
  Receive Date: 20170914
  Receipt Date: 20170914
  Transmission Date: 20171128
  Serious: No
  Sender: FDA-Public Use
  Company Number: US-TEVA-805374ACC

PATIENT
  Sex: Female

DRUGS (8)
  1. COPAXONE [Suspect]
     Active Substance: GLATIRAMER ACETATE
     Indication: PRODUCT USED FOR UNKNOWN INDICATION
     Dosage: FORM STRENGTH: UNKNOWN
  2. RANITIDINE. [Concomitant]
     Active Substance: RANITIDINE
  3. CLONAZEPAM. [Concomitant]
     Active Substance: CLONAZEPAM
  4. VENLAFAXINE [Concomitant]
     Active Substance: VENLAFAXINE HYDROCHLORIDE
  5. BACLOFEN. [Concomitant]
     Active Substance: BACLOFEN
  6. PROVIGIL [Concomitant]
     Active Substance: MODAFINIL
  7. GABAPENTIN. [Concomitant]
     Active Substance: GABAPENTIN
  8. AMPYRA [Suspect]
     Active Substance: DALFAMPRIDINE
     Indication: MULTIPLE SCLEROSIS
     Dosage: 20 MILLIGRAM DAILY;
     Dates: start: 20140712

REACTIONS (1)
  - Injection site erythema [Unknown]
